FAERS Safety Report 4382664-4 (Version None)
Quarter: 2004Q2

REPORT INFORMATION
  Report Type: 
  Country: None (occurrence: None)
  Receive Date: 20040622
  Receipt Date: 20040615
  Transmission Date: 20050107
  Serious: Yes (Other)
  Sender: FDA-Public Use
  Company Number: FR-GLAXOSMITHKLINE-B0336344A

PATIENT
  Sex: Female

DRUGS (2)
  1. VENTOLIN [Suspect]
     Indication: PAINFUL RESPIRATION
     Dosage: 1PUFF AS REQUIRED
     Route: 055
     Dates: end: 20040601
  2. SERETIDE [Concomitant]
     Route: 055

REACTIONS (4)
  - BRONCHOSPASM [None]
  - COUGH [None]
  - PEAK EXPIRATORY FLOW RATE DECREASED [None]
  - RALES [None]
